FAERS Safety Report 5957138-7 (Version None)
Quarter: 2008Q4

REPORT INFORMATION
  Report Type: 
  Country: None (occurrence: None)
  Receive Date: 20081106
  Receipt Date: 20080523
  Transmission Date: 20090506
  Serious: Yes (Other)
  Sender: FDA-Public Use
  Company Number: US200805004885

PATIENT
  Age: 55 Year
  Sex: Male

DRUGS (3)
  1. PROZAC [Suspect]
     Dosage: SEE IMAGE
     Dates: start: 20080201, end: 20080101
  2. PROZAC [Suspect]
     Dosage: SEE IMAGE
     Dates: start: 20080101, end: 20080301
  3. PROZAC [Suspect]
     Dosage: SEE IMAGE
     Dates: start: 20080301, end: 20080401

REACTIONS (2)
  - CRYING [None]
  - MYOCLONUS [None]
